FAERS Safety Report 8548716-X (Version None)
Quarter: 2012Q3

REPORT INFORMATION
  Report Type: 
  Country: None (occurrence: None)
  Receive Date: 20120730
  Receipt Date: 20120723
  Transmission Date: 20120928
  Serious: Yes (Death, Hospitalization, Other)
  Sender: FDA-Public Use
  Company Number: PHHO2008FR09266

PATIENT
  Sex: Male

DRUGS (5)
  1. AFINITOR [Suspect]
     Dosage: 10 MG
     Route: 048
     Dates: start: 20080319
  2. DAUNORUBICIN HCL [Suspect]
     Indication: ACUTE MYELOID LEUKAEMIA
     Dosage: UNK
     Route: 042
     Dates: start: 20080313, end: 20080315
  3. VANCOMYCIN [Concomitant]
  4. AFINITOR [Suspect]
     Indication: ACUTE MYELOID LEUKAEMIA
     Dosage: 10 MG
     Route: 048
     Dates: start: 20080313
  5. CYTARABINE [Suspect]
     Indication: ACUTE MYELOID LEUKAEMIA
     Dosage: UNK
     Dates: start: 20080313, end: 20080319

REACTIONS (24)
  - ZYGOMYCOSIS [None]
  - MIXED LIVER INJURY [None]
  - FEBRILE INFECTION [None]
  - RENAL IMPAIRMENT [None]
  - APPENDICITIS [None]
  - HAEMOPTYSIS [None]
  - ACUTE RESPIRATORY DISTRESS SYNDROME [None]
  - OLIGURIA [None]
  - ASPERGILLOSIS [None]
  - BONE MARROW FAILURE [None]
  - MULTI-ORGAN FAILURE [None]
  - SINUS TACHYCARDIA [None]
  - PYREXIA [None]
  - PNEUMOTHORAX [None]
  - LUNG DISORDER [None]
  - METABOLIC ACIDOSIS [None]
  - RESPIRATORY ACIDOSIS [None]
  - SEPTIC SHOCK [None]
  - THROMBOCYTOPENIA [None]
  - ENTEROVESICAL FISTULA [None]
  - ASTHENIA [None]
  - CONFUSIONAL STATE [None]
  - PULMONARY HYPERTENSION [None]
  - INTESTINAL OBSTRUCTION [None]
